FAERS Safety Report 13418705 (Version 1)
Quarter: 2017Q2

REPORT INFORMATION
  Report Type: Spontaneous
  Country: RU (occurrence: RU)
  Receive Date: 20170406
  Receipt Date: 20170406
  Transmission Date: 20170830
  Serious: Yes (Death)
  Sender: FDA-Public Use
  Company Number: RU-ASTRAZENECA-2017SE34295

PATIENT
  Age: 68 Year
  Sex: Female

DRUGS (1)
  1. FORXIGA [Suspect]
     Active Substance: DAPAGLIFLOZIN
     Dosage: 10.0MG UNKNOWN
     Route: 048
     Dates: start: 20170101, end: 20170228

REACTIONS (1)
  - Pulmonary embolism [Fatal]
